FAERS Safety Report 7058624-1 (Version None)
Quarter: 2010Q4

REPORT INFORMATION
  Report Type: 
  Country: None (occurrence: None)
  Receive Date: 20101022
  Receipt Date: 20101014
  Transmission Date: 20110411
  Serious: Yes (Other)
  Sender: FDA-Public Use
  Company Number: B0679284A

PATIENT
  Sex: Male

DRUGS (3)
  1. ROPINIROLE [Suspect]
     Indication: PARKINSON'S DISEASE
  2. VIAGRA [Suspect]
     Indication: ERECTILE DYSFUNCTION
  3. STALEVO 100 [Suspect]
     Indication: PARKINSON'S DISEASE

REACTIONS (2)
  - DRUG INTERACTION [None]
  - PARKINSON'S DISEASE [None]
